FAERS Safety Report 20338854 (Version 3)
Quarter: 2022Q1

REPORT INFORMATION
  Report Type: Report from Study
  Country: CH (occurrence: CH)
  Receive Date: 20220116
  Receipt Date: 20220209
  Transmission Date: 20220423
  Serious: Yes (Other)
  Sender: FDA-Public Use
  Company Number: CH-ABBVIE-22K-151-4234476-00

PATIENT
  Age: 65 Year
  Sex: Female

DRUGS (4)
  1. CARBIDOPA\LEVODOPA [Suspect]
     Active Substance: CARBIDOPA\LEVODOPA
     Indication: Parkinson^s disease
     Route: 050
     Dates: start: 20150709
  2. CARBIDOPA\LEVODOPA [Suspect]
     Active Substance: CARBIDOPA\LEVODOPA
     Dosage: MD: 5.0 ML, CR NOON: 2.6 ML/H, CRN: 0 ML/H, ED: 2.0 ML
     Route: 050
     Dates: start: 20210710, end: 20220110
  3. CARBIDOPA\LEVODOPA [Suspect]
     Active Substance: CARBIDOPA\LEVODOPA
     Dosage: MD: 5.0 ML, CR NOON: 2.6 ML/H, CRN: 0 ML/H, ED: 2.0 ML
     Route: 050
     Dates: start: 20220110, end: 20220112
  4. BENSERAZIDE HYDROCHLORIDE\LEVODOPA [Concomitant]
     Active Substance: BENSERAZIDE HYDROCHLORIDE\LEVODOPA
     Indication: Parkinson^s disease
     Route: 050
     Dates: start: 20220112, end: 20220113

REACTIONS (5)
  - Unresponsive to stimuli [Recovered/Resolved]
  - Device kink [Recovered/Resolved]
  - Device leakage [Recovered/Resolved]
  - Device dislocation [Recovered/Resolved]
  - Medical device change [Unknown]

NARRATIVE: CASE EVENT DATE: 20220112
